FAERS Safety Report 9079464 (Version 1)
Quarter: 2013Q1

REPORT INFORMATION
  Report Type: Report from Study
  Country: US (occurrence: US)
  Receive Date: 20130130
  Receipt Date: 20130130
  Transmission Date: 20140127
  Serious: No
  Sender: FDA-Public Use
  Company Number: US-ABBOTT-12P-163-0952280-00

PATIENT
  Age: 41 Year
  Sex: Female

DRUGS (4)
  1. HUMIRA 40 MG/ 0.8 ML PRE-FILLED SYRINGE [Suspect]
     Indication: RHEUMATOID ARTHRITIS
     Route: 058
     Dates: start: 20120612
  2. DEPAKOTE [Concomitant]
     Indication: MIGRAINE
     Dosage: ONE DAILY
  3. LAMICTIL [Concomitant]
     Indication: AFFECTIVE DISORDER
     Dosage: 100 MG DAILY
  4. AMBIEN [Concomitant]
     Indication: INSOMNIA
     Dosage: 5-10 MG AS NEEDED

REACTIONS (7)
  - Fatigue [Recovered/Resolved]
  - Lethargy [Recovered/Resolved]
  - Arthralgia [Recovered/Resolved]
  - Vomiting [Recovered/Resolved]
  - Malaise [Recovered/Resolved]
  - Chills [Recovered/Resolved]
  - Influenza like illness [Recovered/Resolved]
